FAERS Safety Report 21727190 (Version 2)
Quarter: 2022Q4

REPORT INFORMATION
  Report Type: Spontaneous
  Country: CA (occurrence: CA)
  Receive Date: 20221214
  Receipt Date: 20221214
  Transmission Date: 20230113
  Serious: Yes (Life-Threatening, Other)
  Sender: FDA-Public Use
  Company Number: CA-PADAGIS-2022PAD01129

PATIENT

DRUGS (1)
  1. MORPHINE SULFATE [Suspect]
     Active Substance: MORPHINE SULFATE
     Indication: Urethral repair
     Dosage: UNK
     Route: 065

REACTIONS (2)
  - Leukoencephalopathy [Unknown]
  - Overdose [Unknown]
